FAERS Safety Report 6057282-2 (Version None)
Quarter: 2009Q1

REPORT INFORMATION
  Report Type: 
  Country: None (occurrence: None)
  Receive Date: 20090129
  Receipt Date: 20080808
  Transmission Date: 20090719
  Serious: No
  Sender: FDA-Public Use
  Company Number: A0740322A

PATIENT
  Age: 44 Year
  Sex: Female
  Weight: 55.9 kg

DRUGS (6)
  1. WELLBUTRIN [Suspect]
     Indication: DRUG USE FOR UNKNOWN INDICATION
     Dosage: 150MG THREE TIMES PER DAY
     Route: 048
     Dates: start: 20060601, end: 20080601
  2. BUPROPION HYDROCHLORIDE [Suspect]
     Indication: DRUG USE FOR UNKNOWN INDICATION
     Dosage: 150MG THREE TIMES PER DAY
     Route: 048
     Dates: start: 20080601, end: 20080601
  3. YAZ [Concomitant]
     Dosage: 20MG PER DAY
     Route: 048
     Dates: start: 20080101
  4. UNSPECIFIED MEDICATION [Concomitant]
     Dosage: 10MG PER DAY
     Route: 048
     Dates: start: 20060601
  5. ADDERALL 10 [Concomitant]
     Dosage: 20MG THREE TIMES PER DAY
     Route: 048
     Dates: start: 20060601
  6. IMITREX [Concomitant]
     Route: 045
     Dates: start: 20000101

REACTIONS (16)
  - ABDOMINAL PAIN UPPER [None]
  - CONFUSIONAL STATE [None]
  - DIZZINESS [None]
  - FATIGUE [None]
  - FEELING ABNORMAL [None]
  - HOT FLUSH [None]
  - INFLUENZA LIKE ILLNESS [None]
  - LISTLESS [None]
  - MALAISE [None]
  - MIGRAINE [None]
  - NAUSEA [None]
  - PAIN [None]
  - POOR QUALITY SLEEP [None]
  - PYREXIA [None]
  - TEMPERATURE INTOLERANCE [None]
  - THERAPEUTIC RESPONSE UNEXPECTED [None]
